FAERS Safety Report 9120445 (Version 1)
Quarter: 2013Q1

REPORT INFORMATION
  Report Type: Spontaneous
  Country: US (occurrence: US)
  Receive Date: 20130226
  Receipt Date: 20130226
  Transmission Date: 20140127
  Serious: Yes (Other)
  Sender: FDA-Public Use
  Company Number: PHHY2013US017591

PATIENT
  Age: 41 Year
  Sex: Male

DRUGS (4)
  1. TRIAMCINOLONE [Suspect]
     Indication: PAIN
     Dosage: 80 MG, UNK
  2. RITONAVIR [Interacting]
     Indication: HIV INFECTION
     Dosage: 100 MG, QD
  3. EMTRICITABINE W/TENOFOVIR [Concomitant]
     Indication: HIV INFECTION
  4. ATAZANAVIR [Concomitant]
     Indication: HIV INFECTION

REACTIONS (9)
  - Hypercorticoidism [Recovering/Resolving]
  - Blood cortisol decreased [Recovering/Resolving]
  - Insomnia [Recovered/Resolved]
  - Anxiety [Recovered/Resolved]
  - Rash [Recovered/Resolved]
  - Acne [Recovered/Resolved]
  - Drug interaction [Unknown]
  - Blood pressure increased [Recovered/Resolved]
  - Drug level increased [Unknown]
